FAERS Safety Report 24073859 (Version 1)
Quarter: 2024Q3

REPORT INFORMATION
  Report Type: Spontaneous
  Country: JP (occurrence: JP)
  Receive Date: 20240710
  Receipt Date: 20240710
  Transmission Date: 20241017
  Serious: Yes (Other)
  Sender: PIERRE FABRE MEDICAMENT
  Company Number: JP-PFM-2020-17664

PATIENT
  Age: 1 Year
  Sex: Female
  Weight: 11 kg

DRUGS (3)
  1. PROPRANOLOL HYDROCHLORIDE [Suspect]
     Active Substance: PROPRANOLOL HYDROCHLORIDE
     Indication: Infantile haemangioma
     Dosage: 1.2 ML, BID (2/DAY)
     Route: 048
     Dates: start: 20181009, end: 20181029
  2. PROPRANOLOL HYDROCHLORIDE [Suspect]
     Active Substance: PROPRANOLOL HYDROCHLORIDE
     Indication: Off label use
     Dosage: 1.8 ML, BID (2/DAY)
     Route: 048
     Dates: start: 20181030, end: 20181105
  3. PROPRANOLOL HYDROCHLORIDE [Suspect]
     Active Substance: PROPRANOLOL HYDROCHLORIDE
     Dosage: 3.2 ML/12 HOURS
     Route: 048
     Dates: start: 20181106, end: 20191025

REACTIONS (4)
  - Hypoglycaemic seizure [Recovered/Resolved]
  - Hypoglycaemia [Recovered/Resolved]
  - Product administered to patient of inappropriate age [Unknown]
  - Off label use [Unknown]

NARRATIVE: CASE EVENT DATE: 20191025
